FAERS Safety Report 21006015 (Version 2)
Quarter: 2022Q3

REPORT INFORMATION
  Report Type: Spontaneous
  Country: US (occurrence: US)
  Receive Date: 20220624
  Receipt Date: 20220705
  Transmission Date: 20221026
  Serious: Yes (Hospitalization, Other)
  Sender: FDA-Public Use
  Company Number: US-SUNOVION-2022SUN001910

PATIENT
  Sex: Female

DRUGS (1)
  1. LUNESTA [Suspect]
     Active Substance: ESZOPICLONE
     Indication: Insomnia
     Dosage: UNK
     Route: 048

REACTIONS (5)
  - Loss of consciousness [Unknown]
  - Haemorrhage [Unknown]
  - Ischaemia [Unknown]
  - Dehydration [Unknown]
  - Therapeutic product effect variable [Unknown]
